FAERS Safety Report 4499338-1 (Version None)
Quarter: 2004Q4

REPORT INFORMATION
  Report Type: 
  Country: None (occurrence: None)
  Receive Date: 20041111
  Receipt Date: 20041103
  Transmission Date: 20050328
  Serious: Yes (Hospitalization)
  Sender: FDA-Public Use
  Company Number: GB-MERCK-0411GBR00042

PATIENT
  Age: 80 Year
  Sex: Male

DRUGS (15)
  1. DECADRON TABLETS [Suspect]
     Route: 048
     Dates: start: 20040501, end: 20041001
  2. DECADRON TABLETS [Suspect]
     Route: 048
     Dates: start: 20041022
  3. DICLOFENAC SODIUM AND MISOPROSTOL [Suspect]
     Route: 048
     Dates: end: 20041015
  4. METOPROLOL [Concomitant]
     Route: 048
  5. RANITIDINE [Concomitant]
     Route: 048
  6. MEBEVERINE PAMOATE [Concomitant]
     Route: 048
  7. LEVOTHYROXINE SODIUM [Concomitant]
     Route: 048
  8. ALBUTEROL [Concomitant]
     Route: 055
  9. FINASTERIDE [Concomitant]
     Route: 048
  10. FUROSEMIDE AND TRIAMTERENE [Concomitant]
     Route: 048
  11. CARBAMAZEPINE [Concomitant]
     Route: 048
  12. PERINDOPRIL [Concomitant]
     Route: 048
  13. NITROGLYCERIN [Concomitant]
     Route: 065
  14. SIMVASTATIN [Concomitant]
     Route: 065
  15. TRAMADOL HYDROCHLORIDE [Concomitant]
     Route: 048

REACTIONS (2)
  - DUODENAL ULCER PERFORATION [None]
  - RECTAL HAEMORRHAGE [None]
